FAERS Safety Report 6191125-1 (Version None)
Quarter: 2009Q2

REPORT INFORMATION
  Report Type: 
  Country: None (occurrence: None)
  Receive Date: 20090513
  Receipt Date: 20090513
  Transmission Date: 20091009
  Serious: Yes (Other)
  Sender: FDA-Public Use
  Company Number: None

PATIENT
  Age: 56 Year
  Sex: Female

DRUGS (15)
  1. CELLCEPT [Suspect]
     Indication: SYSTEMIC LUPUS ERYTHEMATOSUS
     Dosage: 1000MG 2X/D ORAL
     Route: 048
  2. ASPIRIN [Concomitant]
  3. PULMICORT-100 [Concomitant]
  4. ARIMIDEX [Concomitant]
  5. CALCIUM CITRATE [Concomitant]
  6. ALENDRONATE [Concomitant]
  7. FUROSEMIDE [Concomitant]
  8. COREG [Concomitant]
  9. POTASSIUM CHLORIDE [Concomitant]
  10. SERTRALINE HCL [Concomitant]
  11. IBUPROFEN [Concomitant]
  12. PREVACID [Concomitant]
  13. RAMIPRIL [Concomitant]
  14. FOLIC ACID [Concomitant]
  15. PREDNISONE [Concomitant]

REACTIONS (2)
  - NEOPLASM MALIGNANT [None]
  - SARCOMA [None]
